FAERS Safety Report 9043283 (Version 1)
Quarter: 2013Q1

REPORT INFORMATION
  Report Type: Report from Study
  Country: US (occurrence: US)
  Receive Date: 20130129
  Receipt Date: 20130129
  Transmission Date: 20140127
  Serious: No
  Sender: FDA-Public Use
  Company Number: US-ABBOTT-12P-163-0911058-00

PATIENT
  Age: 52 Year
  Sex: Female

DRUGS (5)
  1. HUMIRA 40 MG/0.8 ML PEN [Suspect]
     Indication: RHEUMATOID ARTHRITIS
     Route: 058
     Dates: start: 201104
  2. IBUPROFEN [Concomitant]
     Indication: PAIN
     Dosage: DAILY
  3. SYNTHROID [Concomitant]
     Indication: VITAMIN SUPPLEMENTATION
  4. CELEBREX [Concomitant]
     Indication: RHEUMATOID ARTHRITIS
     Dosage: DAILY
  5. LYRICA [Concomitant]
     Indication: FIBROMYALGIA
     Dosage: DAILY

REACTIONS (7)
  - Injection site erythema [Not Recovered/Not Resolved]
  - Injection site mass [Unknown]
  - Sciatica [Unknown]
  - Pain [Unknown]
  - Paraesthesia [Unknown]
  - Hypoaesthesia [Unknown]
  - Muscle tightness [Unknown]
